FAERS Safety Report 19799808 (Version 3)
Quarter: 2021Q4

REPORT INFORMATION
  Report Type: Spontaneous
  Country: US (occurrence: US)
  Receive Date: 20210907
  Receipt Date: 20211027
  Transmission Date: 20220303
  Serious: Yes (Other)
  Sender: FDA-Public Use
  Company Number: US-BRISTOL-MYERS SQUIBB COMPANY-BMS-2021-088344

PATIENT
  Age: 82 Year
  Sex: Female
  Weight: 68.6 kg

DRUGS (8)
  1. ELIQUIS [Suspect]
     Active Substance: APIXABAN
     Indication: Cerebrovascular accident prophylaxis
     Dosage: 2.5 MILLIGRAM, BID
     Route: 048
     Dates: start: 20210325
  2. TOPROL XL [Concomitant]
     Active Substance: METOPROLOL SUCCINATE
     Indication: Product used for unknown indication
     Dosage: 25 MILLIGRAM, DAILY
     Route: 048
     Dates: start: 20210607
  3. NITROSTAT [Concomitant]
     Active Substance: NITROGLYCERIN
     Indication: Chest pain
     Dosage: PLACE 1 TABLET(0.4 MG, TOTAL) UNDER THE TONGUE EVERY 5 MINUTES AS NEEDED FOR CHEST PAIN
     Route: 060
  4. LASIX [Concomitant]
     Active Substance: FUROSEMIDE
     Indication: Product used for unknown indication
     Dosage: 20 MILLIGRAM, DAILY
     Route: 065
     Dates: start: 20210816
  5. FERROUS SULFATE [Concomitant]
     Active Substance: FERROUS SULFATE
     Indication: Product used for unknown indication
     Dosage: TAKE 1 TABLET (65 MG OF IRON TOTAL) BY MOUTH DAILY
     Route: 048
     Dates: start: 20210827
  6. VENTOLIN HFA [Concomitant]
     Active Substance: ALBUTEROL SULFATE
     Indication: Dyspnoea
     Dosage: INHALE 2 PUFFS EVERY FOUR HOURS AS NEEDED FOR SHORTNESS OF BREATH
     Dates: start: 20210628
  7. NORVASC [Concomitant]
     Active Substance: AMLODIPINE BESYLATE
     Indication: Product used for unknown indication
     Dosage: 10 MILLIGRAM, QD
     Route: 048
     Dates: start: 20210607
  8. VITAMIN C [Concomitant]
     Active Substance: ASCORBIC ACID
     Indication: Product used for unknown indication
     Dosage: TAKE 1 TABLET BY MOUTH TWO TIMES A DAY WITH IRON
     Route: 048
     Dates: start: 20200626, end: 20210626

REACTIONS (3)
  - Dementia [Unknown]
  - Fall [Unknown]
  - Contusion [Unknown]
